FAERS Safety Report 10362495 (Version 3)
Quarter: 2014Q3

REPORT INFORMATION
  Report Type: Spontaneous
  Country: JP (occurrence: JP)
  Receive Date: 20140805
  Receipt Date: 20140822
  Transmission Date: 20150326
  Serious: Yes (Other)
  Sender: FDA-Public Use
  Company Number: PHHY2014JP094851

PATIENT
  Sex: Female

DRUGS (7)
  1. PACLITAXEL. [Interacting]
     Active Substance: PACLITAXEL
     Dosage: 245 MG, PER BODY
  2. CARBOPLATIN. [Interacting]
     Active Substance: CARBOPLATIN
     Dosage: 460 MG, PER BODY
  3. PREDNISOLONE. [Interacting]
     Active Substance: PREDNISOLONE
     Indication: IMMUNOSUPPRESSION
  4. NEORAL [Suspect]
     Active Substance: CYCLOSPORINE
     Indication: RENAL TRANSPLANT
     Route: 048
  5. CARBOPLATIN. [Interacting]
     Active Substance: CARBOPLATIN
     Dosage: 415 MG, PER BODY
  6. NEORAL [Interacting]
     Active Substance: CYCLOSPORINE
     Indication: IMMUNOSUPPRESSION
  7. PACLITAXEL. [Interacting]
     Active Substance: PACLITAXEL
     Dosage: 220 MG, PER BODY

REACTIONS (6)
  - Platelet count decreased [Not Recovered/Not Resolved]
  - Bone marrow failure [Recovered/Resolved]
  - Pyrexia [Recovered/Resolved]
  - White blood cell count decreased [Recovering/Resolving]
  - Drug interaction [Unknown]
  - Neutrophil count decreased [Recovering/Resolving]
